FAERS Safety Report 7335882-7 (Version None)
Quarter: 2011Q1

REPORT INFORMATION
  Report Type: 
  Country: None (occurrence: None)
  Receive Date: 20110301
  Receipt Date: 20110301
  Transmission Date: 20110831
  Serious: No
  Sender: FDA-Public Use
  Company Number: None

PATIENT
  Age: 63 Year
  Sex: Male
  Weight: 69.4 kg

DRUGS (1)
  1. MICAFUNGIN [Suspect]
     Indication: ANTIFUNGAL TREATMENT
     Dosage: 150 MG UD IV
     Route: 042
     Dates: start: 20101127, end: 20101127

REACTIONS (5)
  - DYSPNOEA [None]
  - INFUSION RELATED REACTION [None]
  - CHILLS [None]
  - TREMOR [None]
  - VOMITING [None]
